FAERS Safety Report 9461751 (Version 1)
Quarter: 2013Q3

REPORT INFORMATION
  Report Type: Spontaneous
  Country: ES (occurrence: ES)
  Receive Date: 20130816
  Receipt Date: 20130816
  Transmission Date: 20140515
  Serious: Yes (Hospitalization)
  Sender: FDA-Public Use
  Company Number: ES-PERRIGO-13ES008226

PATIENT
  Age: 24 Year
  Sex: Male

DRUGS (2)
  1. IBUPROFEN 200 MG 604 [Suspect]
     Indication: LIGAMENT SPRAIN
     Dosage: UNK
     Route: 065
  2. OMEPRAZOLE [Suspect]
     Indication: LIGAMENT SPRAIN
     Dosage: UNK
     Route: 065

REACTIONS (1)
  - Drug eruption [Recovering/Resolving]
